FAERS Safety Report 5298819-0 (Version None)
Quarter: 2007Q2

REPORT INFORMATION
  Report Type: 
  Country: None (occurrence: None)
  Receive Date: 20070417
  Receipt Date: 20070411
  Transmission Date: 20071010
  Serious: Yes (Hospitalization, Disabling)
  Sender: FDA-Public Use
  Company Number: IL-NOVOPROD-262717

PATIENT
  Age: 74 Year
  Sex: Female

DRUGS (1)
  1. NOVOSEVEN [Suspect]
     Indication: HAEMORRHAGE
     Dosage: 7.2 MG, UNK
     Route: 042
     Dates: start: 20070320

REACTIONS (1)
  - PERIPHERAL ISCHAEMIA [None]
